FAERS Safety Report 10269358 (Version 2)
Quarter: 2014Q3

REPORT INFORMATION
  Report Type: Spontaneous
  Country: IR (occurrence: IR)
  Receive Date: 20140701
  Receipt Date: 20140701
  Transmission Date: 20150326
  Serious: Yes (Hospitalization)
  Sender: FDA-Public Use
  Company Number: IR-ACCORD-024524

PATIENT
  Age: 7 Year
  Sex: Male

DRUGS (3)
  1. PREDNISONE. [Suspect]
     Active Substance: PREDNISONE
     Indication: EVANS SYNDROME
     Dosage: PREVIOUSLY ALSO RECEIVED PREDNISONE TREATMENT.
  2. CICLOSPORIN [Suspect]
     Active Substance: CYCLOSPORINE
     Indication: EVANS SYNDROME
     Dosage: PREVIOUSLY ALSO RECEIVED 7 MG/KG/DAY IN DIVIDED DOSES (Q8H)
  3. MYCOPHENOLIC ACID [Suspect]
     Active Substance: MYCOPHENOLIC ACID
     Indication: EVANS SYNDROME

REACTIONS (1)
  - Posterior reversible encephalopathy syndrome [Recovered/Resolved]
